FAERS Safety Report 15739852 (Version 1)
Quarter: 2018Q4

REPORT INFORMATION
  Report Type: Report from Study
  Country: JP (occurrence: JP)
  Receive Date: 20181219
  Receipt Date: 20181219
  Transmission Date: 20190205
  Serious: Yes (Other)
  Sender: FDA-Public Use
  Company Number: JP-SA-2018SA326201

PATIENT
  Age: 26 Year
  Sex: Male

DRUGS (24)
  1. ETHIONAMIDE [Suspect]
     Active Substance: ETHIONAMIDE
     Indication: TUBERCULOSIS
     Dosage: 200 MG, QD
     Route: 048
     Dates: start: 20171114, end: 20171218
  2. CARBAZOCHROME SODIUM SULFONATE [Suspect]
     Active Substance: CARBAZOCHROME SODIUM SULFONATE
     Indication: PRODUCT USED FOR UNKNOWN INDICATION
     Dosage: 90 MG, QD
     Route: 048
  3. SHOSEIRYUTO [ASARUM SPP. ROOT;CINNAMOMUM CASSIA BARK;EPHEDRA SPP. HERB [Suspect]
     Active Substance: EPHEDRA SINICA STEM\HERBALS
     Indication: PRODUCT USED FOR UNKNOWN INDICATION
     Dosage: 9 G, QD
     Route: 048
     Dates: start: 20180101, end: 20180118
  4. ETHIONAMIDE [Suspect]
     Active Substance: ETHIONAMIDE
     Dosage: 500 UNK
     Route: 048
     Dates: start: 20171227, end: 20180323
  5. HUSCODE [Suspect]
     Active Substance: CHLORPHENIRAMINE MALEATE\DIHYDROCODEINE PHOSPHATE\METHYLEPHEDRINE HYDROCHLORIDE, DL-
     Indication: PRODUCT USED FOR UNKNOWN INDICATION
     Dosage: 3 MG, QD
     Route: 048
     Dates: start: 20171124, end: 20180123
  6. METOCLOPRAMIDE. [Suspect]
     Active Substance: METOCLOPRAMIDE
     Indication: NAUSEA
     Dosage: 5 MG, PRN
     Route: 048
     Dates: start: 20171219, end: 20180213
  7. LINEZOLID. [Suspect]
     Active Substance: LINEZOLID
     Indication: TUBERCULOSIS
     Dosage: 600 MG, QD
     Route: 048
     Dates: start: 20171214, end: 20180306
  8. DIPHENHYDRAMINE. [Suspect]
     Active Substance: DIPHENHYDRAMINE
     Indication: PRURITUS
     Dosage: UNK UNK, QD
     Route: 061
     Dates: start: 20171218, end: 20180323
  9. IQUIX [Suspect]
     Active Substance: LEVOFLOXACIN
     Indication: PRODUCT USED FOR UNKNOWN INDICATION
     Dosage: 500 MG, QD
     Route: 048
     Dates: start: 20171110, end: 20180323
  10. MUCOSTA [Suspect]
     Active Substance: REBAMIPIDE
     Indication: PRODUCT USED FOR UNKNOWN INDICATION
     Dosage: 100 MG, QD
     Route: 048
     Dates: start: 20171110, end: 20180323
  11. CYCLOSERINE. [Suspect]
     Active Substance: CYCLOSERINE
     Indication: TUBERCULOSIS
     Dosage: 500 MG, QD
     Route: 048
     Dates: start: 20171114, end: 20171218
  12. METOCLOPRAMIDE. [Suspect]
     Active Substance: METOCLOPRAMIDE
     Indication: VOMITING
     Dosage: UNK
     Route: 048
  13. QUETIAPINE FUMARATE. [Suspect]
     Active Substance: QUETIAPINE FUMARATE
     Indication: INSOMNIA
     Dosage: UNK UNK, PRN
     Route: 048
  14. LOXOPROFEN SODIUM [Suspect]
     Active Substance: LOXOPROFEN SODIUM
     Indication: PRODUCT USED FOR UNKNOWN INDICATION
     Dosage: 60 MG, QD
     Dates: start: 20171129, end: 20180208
  15. LEVOCETIRIZINE [Suspect]
     Active Substance: LEVOCETIRIZINE
     Indication: PRURITUS
     Dosage: 5 MG, QD
     Route: 065
     Dates: start: 20171214, end: 20180323
  16. DOMPERIDONE [Suspect]
     Active Substance: DOMPERIDONE
     Indication: PRODUCT USED FOR UNKNOWN INDICATION
     Dosage: 10 MG, QD
     Route: 048
     Dates: start: 20180215, end: 20180323
  17. ETHAMBUTOL DIHYDROCHLORIDE [Suspect]
     Active Substance: ETHAMBUTOL HYDROCHLORIDE
     Indication: TUBERCULOSIS
     Dosage: 750 MG, QD
     Route: 048
     Dates: start: 20171110, end: 20171207
  18. KANAMYCIN SULFATE [Suspect]
     Active Substance: KANAMYCIN SULFATE
     Indication: TUBERCULOSIS
     Dosage: 750 MG, QD
     Route: 030
     Dates: start: 20171110, end: 20180323
  19. BROTIZOLAM [Suspect]
     Active Substance: BROTIZOLAM
     Indication: PRODUCT USED FOR UNKNOWN INDICATION
     Dosage: 0.25 MG, QD
     Route: 048
     Dates: start: 20171210, end: 20180118
  20. HEPARINOID [Suspect]
     Active Substance: CHONDROITIN SULFATE (BOVINE)
     Indication: PRODUCT USED FOR UNKNOWN INDICATION
     Dosage: UNK, QD
     Route: 061
     Dates: start: 20180206, end: 20180323
  21. QUETIAPINE FUMARATE. [Suspect]
     Active Substance: QUETIAPINE FUMARATE
     Indication: RESTLESSNESS
     Dosage: 25 MG, QD
     Route: 048
     Dates: start: 20180115, end: 20180312
  22. LANSOPRAZOLE. [Suspect]
     Active Substance: LANSOPRAZOLE
     Indication: PRODUCT USED FOR UNKNOWN INDICATION
     Dosage: 15 MG, QD
     Route: 048
     Dates: start: 20171214, end: 20180323
  23. TRANEXAMIC ACID. [Suspect]
     Active Substance: TRANEXAMIC ACID
     Indication: PRODUCT USED FOR UNKNOWN INDICATION
     Dosage: 750 MG, QD
     Route: 048
     Dates: start: 20171115, end: 20180124
  24. RAMELTEON [Suspect]
     Active Substance: RAMELTEON
     Indication: PRODUCT USED FOR UNKNOWN INDICATION
     Dosage: 8 MG, QD
     Route: 048
     Dates: start: 20180111, end: 20180118

REACTIONS (9)
  - Platelet count decreased [Unknown]
  - Vomiting [Recovering/Resolving]
  - Anaemia [Unknown]
  - Restlessness [Unknown]
  - Nausea [Recovering/Resolving]
  - Pancytopenia [Recovering/Resolving]
  - Psychomotor hyperactivity [Unknown]
  - Pruritus [Not Recovered/Not Resolved]
  - Abdominal discomfort [Unknown]

NARRATIVE: CASE EVENT DATE: 20171218
